FAERS Safety Report 7111242-9 (Version None)
Quarter: 2010Q4

REPORT INFORMATION
  Report Type: 
  Country: None (occurrence: None)
  Receive Date: 20101118
  Receipt Date: 20090206
  Transmission Date: 20110411
  Serious: No
  Sender: FDA-Public Use
  Company Number: US-PFIZER INC-2009156798

PATIENT
  Sex: Male
  Weight: 13.9 kg

DRUGS (9)
  1. ZYVOX [Suspect]
     Indication: STAPHYLOCOCCAL INFECTION
     Dosage: 6 ML, 3X/DAY
     Route: 048
     Dates: start: 20081201
  2. ZYVOX [Suspect]
     Indication: TRACHEITIS
  3. LASIX [Concomitant]
     Dosage: UNK
  4. REGLAN [Concomitant]
     Dosage: UNK
  5. BETHANECHOL [Concomitant]
     Dosage: UNK
  6. POTASSIUM CHLORIDE [Concomitant]
     Dosage: UNK
  7. CALCIUM [Concomitant]
     Dosage: UNK
  8. PRILOSEC [Concomitant]
     Dosage: UNK
  9. TOBI [Concomitant]

REACTIONS (2)
  - CIRCUMSTANCE OR INFORMATION CAPABLE OF LEADING TO MEDICATION ERROR [None]
  - DRUG INEFFECTIVE [None]
